FAERS Safety Report 6879240-8 (Version None)
Quarter: 2010Q3

REPORT INFORMATION
  Report Type: 
  Country: None (occurrence: None)
  Receive Date: 20100728
  Receipt Date: 20100121
  Transmission Date: 20110219
  Serious: No
  Sender: FDA-Public Use
  Company Number: US-ABBOTT-10P-163-0622203-00

PATIENT
  Sex: Female
  Weight: 65.83 kg

DRUGS (3)
  1. SYNTHROID [Suspect]
     Indication: AUTOIMMUNE THYROIDITIS
     Dosage: DAILY IN AM AT 07:00
     Route: 048
     Dates: start: 20090725, end: 20091006
  2. SYNTHROID [Suspect]
     Indication: HYPOTHYROIDISM
     Dosage: DAILY IN AM AT 0700
     Route: 048
     Dates: start: 20091006, end: 20100111
  3. SYNTHROID [Suspect]
     Dosage: DAILY IN AM AT 0700
     Route: 048
     Dates: start: 20100111

REACTIONS (4)
  - ARTHRITIS [None]
  - DIARRHOEA [None]
  - INFLAMMATION [None]
  - RHEUMATOID FACTOR INCREASED [None]
